FAERS Safety Report 7497844-9 (Version None)
Quarter: 2011Q2

REPORT INFORMATION
  Report Type: 
  Country: None (occurrence: None)
  Receive Date: 20110524
  Receipt Date: 20101220
  Transmission Date: 20111010
  Serious: Yes (Other)
  Sender: FDA-Public Use
  Company Number: US-BAYER-201028874NA

PATIENT
  Age: 22 Year
  Sex: Female
  Weight: 52 kg

DRUGS (8)
  1. YASMIN [Suspect]
     Indication: MENSTRUATION IRREGULAR
     Route: 048
     Dates: start: 20091101, end: 20091201
  2. YASMIN [Suspect]
     Indication: CONTRACEPTION
     Dosage: UNK
     Dates: start: 20070901, end: 20080501
  3. DROSPIRENONE AND ETHINYL ESTRADIOL [Suspect]
     Indication: MENSTRUATION IRREGULAR
  4. IMODIUM [Concomitant]
  5. DROSPIRENONE AND ETHINYL ESTRADIOL [Suspect]
     Indication: CONTRACEPTION
     Dosage: UNK UNK, UNK
     Route: 048
     Dates: start: 20080601, end: 20091101
  6. DROSPIRENONE AND ETHINYL ESTRADIOL [Suspect]
     Indication: PREMENSTRUAL SYNDROME
  7. DIGESTIVE ADVANTAGE [Concomitant]
  8. YASMIN [Suspect]
     Indication: PREMENSTRUAL SYNDROME

REACTIONS (10)
  - GALLBLADDER ENLARGEMENT [None]
  - BACK PAIN [None]
  - BOWEL MOVEMENT IRREGULARITY [None]
  - ABDOMINAL PAIN UPPER [None]
  - CHOLELITHIASIS [None]
  - CHOLECYSTITIS INFECTIVE [None]
  - NAUSEA [None]
  - GALLBLADDER ANOMALY CONGENITAL [None]
  - PROCEDURAL PAIN [None]
  - CHOLECYSTITIS CHRONIC [None]
